FAERS Safety Report 25437174 (Version 1)
Quarter: 2025Q2

REPORT INFORMATION
  Report Type: Spontaneous
  Country: US (occurrence: US)
  Receive Date: 20250616
  Receipt Date: 20250616
  Transmission Date: 20250716
  Serious: Yes (Other)
  Sender: ABBVIE
  Company Number: US-ABBVIE-6321090

PATIENT
  Sex: Male

DRUGS (3)
  1. BOTOX [Suspect]
     Active Substance: ONABOTULINUMTOXINA
     Indication: Muscle spasms
     Route: 030
     Dates: start: 20241007, end: 20241007
  2. BOTOX [Suspect]
     Active Substance: ONABOTULINUMTOXINA
     Indication: Muscle spasms
     Route: 030
     Dates: start: 20250606, end: 20250606
  3. BOTOX [Suspect]
     Active Substance: ONABOTULINUMTOXINA
     Indication: Muscle spasms
     Route: 030
     Dates: start: 20250108, end: 20250108

REACTIONS (2)
  - Cerebrovascular accident [Unknown]
  - Cerebrovascular accident [Recovered/Resolved]
